FAERS Safety Report 7755104-2 (Version None)
Quarter: 2011Q3

REPORT INFORMATION
  Report Type: 
  Country: None (occurrence: None)
  Receive Date: 20110916
  Receipt Date: 20110913
  Transmission Date: 20111222
  Serious: No
  Sender: FDA-Public Use
  Company Number: US-PFIZER INC-2011182029

PATIENT
  Sex: Female

DRUGS (2)
  1. ZMAX [Suspect]
     Indication: OROPHARYNGEAL PAIN
     Dosage: UNK
     Route: 048
     Dates: start: 20110801, end: 20110801
  2. ZMAX [Suspect]
     Dosage: UNK
     Route: 048
     Dates: start: 20110723, end: 20110724

REACTIONS (4)
  - URTICARIA [None]
  - PRURITUS [None]
  - PYREXIA [None]
  - RASH [None]
